FAERS Safety Report 13737649 (Version 1)
Quarter: 2017Q3

REPORT INFORMATION
  Report Type: Report from Study
  Country: US (occurrence: US)
  Receive Date: 20170710
  Receipt Date: 20170710
  Transmission Date: 20171127
  Serious: Yes (Other)
  Sender: FDA-Public Use
  Company Number: US-SAOL THERAPEUTICS-2016SAO00231

PATIENT
  Age: 61 Year
  Sex: Male

DRUGS (33)
  1. COMPOUNDED BACLOFEN [Suspect]
     Active Substance: BACLOFEN
     Dosage: 140.15 ?G, \DAY
     Route: 037
     Dates: start: 20150630
  2. CLONIDINE. [Suspect]
     Active Substance: CLONIDINE
     Dosage: UNK
  3. CLONIDINE. [Suspect]
     Active Substance: CLONIDINE
     Dosage: 93.43 ?G, \DAY
     Route: 037
     Dates: start: 20150630
  4. BUPIVACAINE. [Suspect]
     Active Substance: BUPIVACAINE
     Dosage: 20.041 MG, \DAY
     Route: 037
     Dates: start: 20150924
  5. BUPIVACAINE. [Suspect]
     Active Substance: BUPIVACAINE
     Dosage: 10.997 MG, \DAY
     Route: 037
  6. COMPOUNDED BACLOFEN [Suspect]
     Active Substance: BACLOFEN
     Dosage: 150.18 ?G, \DAY
     Dates: start: 20151123
  7. CLONIDINE. [Suspect]
     Active Substance: CLONIDINE
     Dosage: 133.61 ?G, \DAY
     Route: 037
     Dates: start: 20151029
  8. DILAUDID [Suspect]
     Active Substance: HYDROMORPHONE HYDROCHLORIDE
     Dosage: 0.549 MG, \DAY
     Route: 037
  9. COMPOUNDED BACLOFEN [Suspect]
     Active Substance: BACLOFEN
     Indication: PAIN
     Dosage: UNK
  10. COMPOUNDED BACLOFEN [Suspect]
     Active Substance: BACLOFEN
     Dosage: 150.18 ?G, \DAY
     Route: 037
     Dates: start: 20151125
  11. CLONIDINE. [Suspect]
     Active Substance: CLONIDINE
     Dosage: 100.12 ?G, \DAY
     Dates: start: 20151123
  12. BUPIVACAINE. [Suspect]
     Active Substance: BUPIVACAINE
     Dosage: 5.018 MG, \DAY
     Route: 037
     Dates: start: 20151125
  13. DILAUDID [Suspect]
     Active Substance: HYDROMORPHONE HYDROCHLORIDE
     Dosage: UNK
  14. DILAUDID [Suspect]
     Active Substance: HYDROMORPHONE HYDROCHLORIDE
     Dosage: 1.002 MG, \DAY
     Route: 037
     Dates: start: 20150924
  15. COMPOUNDED BACLOFEN [Suspect]
     Active Substance: BACLOFEN
     Dosage: 170.21 ?G, \DAY
     Route: 037
     Dates: start: 20150813
  16. COMPOUNDED BACLOFEN [Suspect]
     Active Substance: BACLOFEN
     Dosage: 200.41 ?G, \DAY
     Route: 037
     Dates: start: 20150924
  17. CLONIDINE. [Suspect]
     Active Substance: CLONIDINE
     Dosage: 73.31 ?G, \DAY
     Route: 037
  18. CLONIDINE. [Suspect]
     Active Substance: CLONIDINE
     Dosage: 100.12 ?G, \DAY
     Route: 037
     Dates: start: 20151123
  19. BUPIVACAINE. [Suspect]
     Active Substance: BUPIVACAINE
     Dosage: UNK
  20. BUPIVACAINE. [Suspect]
     Active Substance: BUPIVACAINE
     Dosage: 14.015 MG, \DAY
     Route: 037
     Dates: start: 20150630
  21. COMPOUNDED BACLOFEN [Suspect]
     Active Substance: BACLOFEN
     Dosage: 200.41 ?G, \DAY
     Dates: start: 20151125
  22. BUPIVACAINE. [Suspect]
     Active Substance: BUPIVACAINE
     Dosage: 17.021 MG, \DAY
     Route: 037
     Dates: start: 20150813
  23. COMPOUNDED BACLOFEN [Suspect]
     Active Substance: BACLOFEN
     Dosage: 150.18 ?G, \DAY
     Route: 037
     Dates: start: 20151125
  24. COMPOUNDED BACLOFEN [Suspect]
     Active Substance: BACLOFEN
     Dosage: 109.97 ?G, \DAY
     Route: 037
  25. CLONIDINE. [Suspect]
     Active Substance: CLONIDINE
     Dosage: 113.47 ?G, \DAY
     Route: 037
     Dates: start: 20150813
  26. BUPIVACAINE. [Suspect]
     Active Substance: BUPIVACAINE
     Dosage: 20.041 ?G, \DAY
     Dates: start: 20151125
  27. BUPIVACAINE. [Suspect]
     Active Substance: BUPIVACAINE
     Dosage: 15.018 MG, \DAY
     Route: 037
     Dates: start: 20151125
  28. DILAUDID [Suspect]
     Active Substance: HYDROMORPHONE HYDROCHLORIDE
     Dosage: 0.851 MG, \DAY
     Route: 037
     Dates: start: 20150813
  29. DILAUDID [Suspect]
     Active Substance: HYDROMORPHONE HYDROCHLORIDE
     Dosage: 0.759 MG, \DAY
     Route: 037
     Dates: start: 20151125
  30. DILAUDID [Suspect]
     Active Substance: HYDROMORPHONE HYDROCHLORIDE
     Dosage: 0.751 ?G, \DAY
     Route: 037
     Dates: start: 20151123
  31. DILAUDID [Suspect]
     Active Substance: HYDROMORPHONE HYDROCHLORIDE
     Dosage: 1.002 MG, \DAY
     Dates: start: 20151125
  32. BUPIVACAINE. [Suspect]
     Active Substance: BUPIVACAINE
     Dosage: 15.018 MG, \DAY
     Route: 037
     Dates: start: 20151123
  33. DILAUDID [Suspect]
     Active Substance: HYDROMORPHONE HYDROCHLORIDE
     Dosage: 0.701 MG, \DAY
     Route: 037
     Dates: start: 20150630

REACTIONS (9)
  - Infusion site mass [Recovered/Resolved]
  - Overdose [Unknown]
  - Vomiting [Unknown]
  - Therapeutic response decreased [Recovered/Resolved]
  - Burning sensation [Unknown]
  - Nausea [Unknown]
  - Dizziness [Unknown]
  - Pain [Unknown]
  - Radicular pain [Unknown]

NARRATIVE: CASE EVENT DATE: 20150617
